FAERS Safety Report 5542556-1 (Version None)
Quarter: 2007Q4

REPORT INFORMATION
  Report Type: 
  Country: None (occurrence: None)
  Receive Date: 20071120
  Receipt Date: 20070524
  Transmission Date: 20080405
  Serious: Yes (Other)
  Sender: FDA-Public Use
  Company Number: 37455

PATIENT
  Age: 16 Year
  Sex: Male

DRUGS (1)
  1. METHOTREXATE [Suspect]
     Indication: JUVENILE ARTHRITIS
     Dosage: 1 ML SUBCUTANEOUSLY ONCE WEE OVER 1 YEAR (MOST RECENT DOSE 2
     Route: 058

REACTIONS (1)
  - INJECTION SITE REACTION [None]
